FAERS Safety Report 5590301-6 (Version None)
Quarter: 2008Q1

REPORT INFORMATION
  Report Type: 
  Country: None (occurrence: None)
  Receive Date: 20080114
  Receipt Date: 20080109
  Transmission Date: 20080703
  Serious: Yes (Hospitalization)
  Sender: FDA-Public Use
  Company Number: ES-SANOFI-SYNTHELABO-F01200800035

PATIENT
  Sex: Male

DRUGS (9)
  1. OMEPRAZOLE [Concomitant]
  2. ANASMA [Concomitant]
  3. SPIRIVA [Concomitant]
  4. DAONIL [Concomitant]
  5. ADOLONTA [Concomitant]
  6. MOVALIS [Concomitant]
  7. BEVACIZUMAB [Suspect]
     Route: 042
     Dates: start: 20071108, end: 20071108
  8. CAPECITABINE [Suspect]
     Route: 048
     Dates: start: 20071108
  9. OXALIPLATIN [Suspect]
     Indication: COLORECTAL CANCER METASTATIC
     Route: 042
     Dates: start: 20071108, end: 20071108

REACTIONS (1)
  - ATRIAL FLUTTER [None]
